FAERS Safety Report 17434583 (Version 1)
Quarter: 2020Q1

REPORT INFORMATION
  Report Type: Spontaneous
  Country: FR (occurrence: FR)
  Receive Date: 20200219
  Receipt Date: 20200219
  Transmission Date: 20200409
  Serious: Yes (Hospitalization)
  Sender: FDA-Public Use
  Company Number: FR-MYLANLABS-2020M1016650

PATIENT
  Sex: Male
  Weight: 2.97 kg

DRUGS (8)
  1. VENLAFAXINE [Suspect]
     Active Substance: VENLAFAXINE HYDROCHLORIDE
     Indication: DEPRESSION
     Dosage: 37.5 MILLIGRAM, QD
     Route: 064
     Dates: end: 20191125
  2. HUMALOG MIX75/25 [Concomitant]
     Active Substance: INSULIN LISPRO
     Indication: GESTATIONAL DIABETES
     Dosage: 14 INTERNATIONAL UNIT, QD
     Route: 064
     Dates: start: 20191017, end: 20191125
  3. HYDROXYZINE [Suspect]
     Active Substance: HYDROXYZINE HYDROCHLORIDE
     Indication: ANXIETY
     Dosage: 25 MILLIGRAM, QD
     Route: 064
     Dates: start: 20191120, end: 20191124
  4. ISOFUNDINE [Concomitant]
     Active Substance: CALCIUM CHLORIDE\MAGNESIUM CHLORIDE\MALIC ACID\POTASSIUM CHLORIDE\SODIUM ACETATE\SODIUM CHLORIDE
     Dosage: 500 MILLILITER/SOLUTION POUR PERFUSION
     Route: 064
     Dates: start: 20191125, end: 20191125
  5. UMULINE [Concomitant]
     Active Substance: INSULIN HUMAN
     Indication: GESTATIONAL DIABETES
     Dosage: 16 INTERNATIONAL UNIT, QD
     Route: 064
     Dates: start: 20191017, end: 20191125
  6. MEGAMAG                            /01486820/ [Concomitant]
     Indication: VITAMIN SUPPLEMENTATION
     Dosage: 6 DOSAGE FORM, QD
     Route: 064
     Dates: start: 20190802, end: 20190823
  7. CHOLURSO [Concomitant]
     Active Substance: URSODIOL
     Indication: CHOLESTASIS
     Dosage: 2 DOSAGE FORM, QD
     Route: 064
     Dates: start: 20191119, end: 20191125
  8. PARACETAMOL [Concomitant]
     Active Substance: ACETAMINOPHEN
     Indication: PAIN
     Dosage: INCONNUE
     Route: 064
     Dates: start: 201908

REACTIONS (4)
  - Clonus [Recovered/Resolved]
  - Tremor [Recovered/Resolved]
  - Foetal exposure during pregnancy [Recovered/Resolved]
  - Neonatal respiratory distress [Recovered/Resolved]

NARRATIVE: CASE EVENT DATE: 20191125
